FAERS Safety Report 8009249-2 (Version None)
Quarter: 2011Q4

REPORT INFORMATION
  Report Type: 
  Country: None (occurrence: None)
  Receive Date: 20111227
  Receipt Date: 20111220
  Transmission Date: 20120403
  Serious: Yes (Hospitalization)
  Sender: FDA-Public Use
  Company Number: PHHY2011GB110638

PATIENT
  Age: 32 Year
  Sex: Male
  Weight: 61 kg

DRUGS (16)
  1. CHLORHEXIDINE GLUCONATE [Concomitant]
  2. PROPOFOL [Concomitant]
  3. DOCUSATE [Concomitant]
  4. MIDAZOLAM [Concomitant]
  5. MAGNESIUM [Concomitant]
  6. OMEPRAZOLE [Concomitant]
  7. ALFENTANIL [Concomitant]
  8. MAGNESIUM SULFATE [Concomitant]
  9. PABRINEX [Concomitant]
  10. VANCOMYCIN HYCHLORIDE [Suspect]
     Dosage: 1000 MG, BID
     Route: 042
     Dates: start: 20111101
  11. POLYHEXANIDE [Concomitant]
  12. SENNA [Concomitant]
  13. VALPROATE SODIUM [Suspect]
     Dosage: 300 MG, BID
     Route: 042
     Dates: start: 20111031, end: 20111103
  14. FUROSEMIDE [Concomitant]
  15. METOCLOPRAMIDE [Concomitant]
  16. LEVETIRACETAM [Suspect]
     Indication: CONVULSION
     Dosage: 250 MG, BID
     Dates: start: 20111103, end: 20111103

REACTIONS (4)
  - DRUG RASH WITH EOSINOPHILIA AND SYSTEMIC SYMPTOMS [None]
  - HEPATITIS [None]
  - SKIN REACTION [None]
  - TUBULOINTERSTITIAL NEPHRITIS [None]
